FAERS Safety Report 16367316 (Version 2)
Quarter: 2019Q2

REPORT INFORMATION
  Report Type: Spontaneous
  Country: US (occurrence: US)
  Receive Date: 20190529
  Receipt Date: 20190610
  Transmission Date: 20190711
  Serious: Yes (Disabling, Other)
  Sender: FDA-Public Use
  Company Number: US-PFIZER INC-2019198055

PATIENT
  Age: 53 Year
  Sex: Male
  Weight: 104.3 kg

DRUGS (2)
  1. VFEND [Suspect]
     Active Substance: VORICONAZOLE
     Indication: DEVICE RELATED INFECTION
     Dosage: 400 MG, 2X/DAY
     Route: 048
     Dates: start: 201903
  2. VFEND [Suspect]
     Active Substance: VORICONAZOLE
     Indication: FUNGAL INFECTION

REACTIONS (5)
  - Off label use [Unknown]
  - Lymphadenopathy [Unknown]
  - Pain in extremity [Unknown]
  - Glaucoma [Unknown]
  - Photophobia [Unknown]

NARRATIVE: CASE EVENT DATE: 2019
